FAERS Safety Report 12422332 (Version 1)
Quarter: 2016Q2

REPORT INFORMATION
  Report Type: Report from Study
  Country: GB (occurrence: GB)
  Receive Date: 20160601
  Receipt Date: 20160601
  Transmission Date: 20160815
  Serious: Yes (Hospitalization)
  Sender: FDA-Public Use
  Company Number: GB-ROCHE-1753639

PATIENT
  Sex: Male
  Weight: 109 kg

DRUGS (7)
  1. GAMMAPLEX [Concomitant]
     Active Substance: HUMAN IMMUNOGLOBULIN G
     Dosage: LAST DOSE: 45G
     Route: 042
     Dates: start: 20100813
  2. OBINUTUZUMAB [Suspect]
     Active Substance: OBINUTUZUMAB
     Indication: CHRONIC LYMPHOCYTIC LEUKAEMIA
     Dosage: LAST DOSE: 1000MG
     Route: 042
     Dates: start: 20160203, end: 20160331
  3. LEVOTHYROXINE. [Concomitant]
     Active Substance: LEVOTHYROXINE
     Dosage: LAST DOSE: 50MICG
     Route: 048
     Dates: start: 2012
  4. CHLORAMPHENICOL [Concomitant]
     Active Substance: CHLORAMPHENICOL
     Dosage: EYE/EAR DROPS
     Route: 061
     Dates: start: 20160420
  5. BISOPROLOL [Concomitant]
     Active Substance: BISOPROLOL
     Dosage: LAST DOSE: 1.25MG
     Route: 048
     Dates: start: 20101202
  6. OMEPRAZOLE. [Concomitant]
     Active Substance: OMEPRAZOLE
     Dosage: LAST DOSE: 20MG
     Route: 048
     Dates: start: 2011
  7. IBRUTINIB [Suspect]
     Active Substance: IBRUTINIB
     Indication: CHRONIC LYMPHOCYTIC LEUKAEMIA
     Route: 065

REACTIONS (2)
  - Reiter^s syndrome [Recovered/Resolved]
  - Viral infection [Not Recovered/Not Resolved]

NARRATIVE: CASE EVENT DATE: 20160416
